FAERS Safety Report 4495835-3 (Version None)
Quarter: 2004Q4

REPORT INFORMATION
  Report Type: 
  Country: None (occurrence: None)
  Receive Date: 20041108
  Receipt Date: 20041018
  Transmission Date: 20050328
  Serious: Yes (Hospitalization)
  Sender: FDA-Public Use
  Company Number: DE-GLAXOSMITHKLINE-B0348491A

PATIENT
  Age: 59 Year
  Sex: Male
  Weight: 74.5 kg

DRUGS (9)
  1. TOPOTECAN [Suspect]
     Indication: SMALL CELL LUNG CANCER STAGE UNSPECIFIED
     Dosage: 1MGM2 PER DAY
     Route: 042
     Dates: start: 20040922, end: 20040926
  2. CISPLATIN [Suspect]
     Indication: SMALL CELL LUNG CANCER STAGE UNSPECIFIED
     Dosage: 75MGM2 PER DAY
     Route: 042
     Dates: start: 20040926, end: 20040926
  3. PANTOZOL [Concomitant]
  4. CLEXANE [Concomitant]
  5. NOCTAMID [Concomitant]
  6. ACC [Concomitant]
  7. NEXIUM [Concomitant]
  8. DEXAMETHASONE [Concomitant]
  9. KEVATRIL [Concomitant]

REACTIONS (3)
  - CHEST PAIN [None]
  - INTRACARDIAC THROMBUS [None]
  - MYOCARDIAL INFARCTION [None]
